FAERS Safety Report 8455031-1 (Version None)
Quarter: 2012Q2

REPORT INFORMATION
  Report Type: 
  Country: None (occurrence: None)
  Receive Date: 20120615
  Receipt Date: 20120615
  Transmission Date: 20120825
  Serious: Yes (Life-Threatening, Hospitalization)
  Sender: FDA-Public Use
  Company Number: None

PATIENT
  Sex: Female
  Weight: 80.7403 kg

DRUGS (11)
  1. LORAZEPAM [Concomitant]
  2. POTASSIUM CHLORIDE [Concomitant]
  3. LEVOTHYROXINE [Concomitant]
  4. MAGNESIUM [Concomitant]
  5. VIT D3 [Concomitant]
  6. VITAMIN 3 [Concomitant]
  7. ASPIRIN [Concomitant]
  8. PRADAXA [Suspect]
     Indication: CORONARY ARTERY DISEASE
     Dosage: 150 MG BID PO
     Route: 048
     Dates: start: 20120127, end: 20120428
  9. SIMVASTATIN [Concomitant]
  10. LISINOPRIL [Concomitant]
  11. FUROSEMIDE [Concomitant]

REACTIONS (1)
  - GASTROINTESTINAL HAEMORRHAGE [None]
